FAERS Safety Report 6257351-8 (Version None)
Quarter: 2009Q3

REPORT INFORMATION
  Report Type: 
  Country: None (occurrence: None)
  Receive Date: 20090706
  Receipt Date: 20090624
  Transmission Date: 20100115
  Serious: Yes (Hospitalization, Other)
  Sender: FDA-Public Use
  Company Number: PHHY2009IT25459

PATIENT
  Age: 43 Year
  Sex: Male

DRUGS (1)
  1. CYCLOSPORINE [Suspect]
     Indication: STEM CELL TRANSPLANT

REACTIONS (11)
  - CONVULSION [None]
  - DYSPHAGIA [None]
  - FACIAL PARESIS [None]
  - GUILLAIN-BARRE SYNDROME [None]
  - MUSCULAR WEAKNESS [None]
  - NEUROTOXICITY [None]
  - PALATAL DISORDER [None]
  - PARALYSIS [None]
  - RESPIRATORY FAILURE [None]
  - SPEECH DISORDER [None]
  - TRACHEOSTOMY [None]
